FAERS Safety Report 7894764 (Version 5)
Quarter: 2012Q4

REPORT INFORMATION
  Report Type: 
  Country: US (occurrence: US)
  Receive Date: 20110412
  Receipt Date: 20120918
  Transmission Date: 20130627
  Serious: Yes (Life-Threatening, Hospitalization)
  Sender: FDA-Public Use
  Company Number: US-BAYER-2011-030921

PATIENT
  Age: 48 Year
  Sex: Female
  Weight: 77 kg

DRUGS (8)
  1. YASMIN [Suspect]
     Indication: CONTRACEPTION
     Dosage: UNK
     Route: 048
     Dates: start: 2003, end: 2008
  2. OCELLA [Suspect]
     Indication: CONTRACEPTION
     Dosage: UNK
     Route: 048
     Dates: start: 2008, end: 2009
  3. ACYCLOVIR [ACICLOVIR] [Concomitant]
     Dosage: UNK
     Dates: start: 2003, end: 2009
  4. ASPIRIN [Concomitant]
  5. SIMVASTATIN [Concomitant]
     Indication: HYPERLIPIDAEMIA
  6. MALARONE [Concomitant]
  7. VIVOTIF BERNA [Concomitant]
     Dosage: UNK
     Route: 048
     Dates: start: 20090925
  8. CIPROFLOXACIN [Concomitant]
     Dosage: UNK
     Route: 048
     Dates: start: 20090925

REACTIONS (12)
  - Cerebrovascular accident [None]
  - Hemiparesis [None]
  - Aphasia [None]
  - Amnesia [None]
  - Facial asymmetry [None]
  - Dysgraphia [None]
  - Speech disorder [None]
  - Injury [None]
  - Pain [None]
  - General physical health deterioration [None]
  - Anxiety [None]
  - Anhedonia [None]
